FAERS Safety Report 24265689 (Version 3)
Quarter: 2024Q4

REPORT INFORMATION
  Report Type: Spontaneous
  Country: US (occurrence: US)
  Receive Date: 20240829
  Receipt Date: 20241015
  Transmission Date: 20250115
  Serious: Yes (Hospitalization)
  Sender: BOEHRINGER INGELHEIM
  Company Number: US-Komodo Health-a23aa000002pmJCAAY

PATIENT
  Age: 73 Year
  Sex: Female
  Weight: 65.77 kg

DRUGS (2)
  1. JARDIANCE [Suspect]
     Active Substance: EMPAGLIFLOZIN
     Indication: Type 2 diabetes mellitus
  2. JARDIANCE [Suspect]
     Active Substance: EMPAGLIFLOZIN
     Dates: start: 20161101, end: 20170131

REACTIONS (1)
  - Urinary tract infection [Recovered/Resolved]

NARRATIVE: CASE EVENT DATE: 20240601
